FAERS Safety Report 10713170 (Version 1)
Quarter: 2015Q1

REPORT INFORMATION
  Report Type: Report from Study
  Country: NL (occurrence: NL)
  Receive Date: 20150115
  Receipt Date: 20150115
  Transmission Date: 20150721
  Serious: Yes (Death, Other)
  Sender: FDA-Public Use
  Company Number: NL-AMGEN-NLDSL2015002759

PATIENT
  Age: 82 Year
  Sex: Male

DRUGS (2)
  1. VALIUM [Concomitant]
     Active Substance: DIAZEPAM
  2. ARANESP [Suspect]
     Active Substance: DARBEPOETIN ALFA
     Indication: PRODUCT USED FOR UNKNOWN INDICATION
     Dosage: 500 MUG, Q3WK
     Route: 058
     Dates: start: 20140204

REACTIONS (3)
  - Haemoglobin abnormal [Unknown]
  - Back pain [Unknown]
  - Death [Fatal]

NARRATIVE: CASE EVENT DATE: 20150108
